FAERS Safety Report 8845167 (Version 1)
Quarter: 2012Q4

REPORT INFORMATION
  Report Type: Spontaneous
  Country: US (occurrence: None)
  Receive Date: 20121016
  Receipt Date: 20121016
  Transmission Date: 20130627
  Serious: Yes (Hospitalization)
  Sender: FDA-Public Use
  Company Number: None

PATIENT
  Age: 75 Year
  Sex: Female
  Weight: 100 kg

DRUGS (13)
  1. COUMADIN [Suspect]
     Indication: CHRONIC ATRIAL FIBRILLATION
     Dosage: TWFSD/MTHS
CHRONIC
     Route: 048
  2. COUMADIN [Suspect]
     Dosage: TWFSD/MTHS
CHRONIC
     Route: 048
  3. ASA [Suspect]
     Indication: CORONARY ARTERY DISEASE
     Route: 048
  4. SPIRIVA [Concomitant]
  5. PROTONIX [Concomitant]
  6. LASIX [Concomitant]
  7. LISINOPRIL [Concomitant]
  8. URSODIL [Concomitant]
  9. PRAVASTATIN [Concomitant]
  10. AMIADARONE [Concomitant]
  11. VIT C [Concomitant]
  12. COREG [Concomitant]
  13. SPIRONOLACTONE [Concomitant]

REACTIONS (5)
  - Gastrointestinal haemorrhage [None]
  - Blood urea increased [None]
  - Colitis ischaemic [None]
  - Renal disorder [None]
  - Embolism [None]
